FAERS Safety Report 10216979 (Version 2)
Quarter: 2014Q2

REPORT INFORMATION
  Report Type: Spontaneous
  Country: ES (occurrence: ES)
  Receive Date: 20140604
  Receipt Date: 20140617
  Transmission Date: 20141212
  Serious: Yes (Hospitalization)
  Sender: FDA-Public Use
  Company Number: ES-GLAXOSMITHKLINE-B0998807A

PATIENT
  Age: 37 Year
  Sex: Female

DRUGS (5)
  1. SERETIDE [Suspect]
     Indication: HYPERSENSITIVITY
     Route: 065
  2. ATROVENT [Concomitant]
     Indication: HYPERSENSITIVITY
     Route: 065
  3. ZAMENE [Concomitant]
     Indication: HYPERSENSITIVITY
     Route: 065
     Dates: start: 20140521
  4. LEVOFLOXACIN [Concomitant]
     Indication: BRONCHITIS
     Route: 065
     Dates: start: 20140521
  5. MUCOLITIC [Concomitant]
     Indication: HYPERSENSITIVITY

REACTIONS (3)
  - Ischaemic stroke [Recovered/Resolved]
  - Hemiparesis [Recovered/Resolved]
  - Dysstasia [Recovered/Resolved]
